FAERS Safety Report 7064795-3 (Version None)
Quarter: 2010Q4

REPORT INFORMATION
  Report Type: 
  Country: None (occurrence: None)
  Receive Date: 20101027
  Receipt Date: 20101014
  Transmission Date: 20110411
  Serious: Yes (Life-Threatening, Hospitalization, Other)
  Sender: FDA-Public Use
  Company Number: GB-ELI_LILLY_AND_COMPANY-GB201009000095

PATIENT
  Age: 46 Year
  Sex: Male

DRUGS (4)
  1. ZYPREXA [Suspect]
     Indication: PSYCHOTIC DISORDER
     Dosage: 12.5 MG, 2/D
     Route: 048
  2. ZYPREXA [Suspect]
     Dosage: 12.5 MG, DAILY (1/D)
     Route: 048
  3. CLOZARIL [Concomitant]
     Indication: SCHIZOPHRENIA
     Dosage: 100 MG, EACH MORNING
     Dates: start: 20100707, end: 20100729
  4. CLOZARIL [Concomitant]
     Dosage: 200 MG, EACH EVENING

REACTIONS (11)
  - C-REACTIVE PROTEIN INCREASED [None]
  - EJECTION FRACTION DECREASED [None]
  - EOSINOPHIL COUNT INCREASED [None]
  - FEELING HOT [None]
  - HEADACHE [None]
  - INFECTION [None]
  - LABILE BLOOD PRESSURE [None]
  - MYOCARDITIS [None]
  - PYREXIA [None]
  - TACHYCARDIA [None]
  - VOMITING [None]
